FAERS Safety Report 19790965 (Version 3)
Quarter: 2021Q3

REPORT INFORMATION
  Report Type: Spontaneous
  Country: US (occurrence: US)
  Receive Date: 20210906
  Receipt Date: 20210929
  Transmission Date: 20211014
  Serious: No
  Sender: FDA-Public Use
  Company Number: US-TEVA-2021-US-1948005

PATIENT
  Sex: Female

DRUGS (2)
  1. RISEDRONATE SODIUM TEVA [Suspect]
     Active Substance: RISEDRONATE SODIUM
     Indication: OSTEOPENIA
     Route: 065
  2. RISEDRONATE SODIUM TEVA [Suspect]
     Active Substance: RISEDRONATE SODIUM
     Indication: OSTEOPOROSIS

REACTIONS (5)
  - Abdominal discomfort [Not Recovered/Not Resolved]
  - Dyspepsia [Unknown]
  - Abdominal pain lower [Unknown]
  - Feeding disorder [Unknown]
  - Diarrhoea [Unknown]
